FAERS Safety Report 22590533 (Version 1)
Quarter: 2023Q2

REPORT INFORMATION
  Report Type: Spontaneous
  Country: US (occurrence: None)
  Receive Date: 20230609
  Receipt Date: 20230609
  Transmission Date: 20230721
  Serious: Yes (Other)
  Sender: FDA-Public Use
  Company Number: None

PATIENT
  Age: 86 Year
  Sex: Male
  Weight: 62.5 kg

DRUGS (3)
  1. MIRCERA [Suspect]
     Active Substance: METHOXY POLYETHYLENE GLYCOL-EPOETIN BETA
     Indication: Anaemia
     Dosage: OTHER FREQUENCY : EVERY 2 WEEKS;?
     Route: 042
     Dates: start: 20230413, end: 20230605
  2. Zone bar [Concomitant]
  3. OXYGEN [Concomitant]
     Active Substance: OXYGEN

REACTIONS (9)
  - Nausea [None]
  - Dyspnoea [None]
  - Loss of consciousness [None]
  - Vomiting [None]
  - Dyspepsia [None]
  - Back pain [None]
  - Anxiety [None]
  - Injection related reaction [None]
  - Therapy cessation [None]

NARRATIVE: CASE EVENT DATE: 20230605
